FAERS Safety Report 4798119-9 (Version None)
Quarter: 2005Q4

REPORT INFORMATION
  Report Type: 
  Country: None (occurrence: None)
  Receive Date: 20051014
  Receipt Date: 20051010
  Transmission Date: 20060501
  Serious: Yes (Hospitalization)
  Sender: FDA-Public Use
  Company Number: DE-BOEHRINGER INGELHEIM PHARMACEUTICALS, INC.-2005-DE-04187DE

PATIENT
  Sex: Male
  Weight: 80 kg

DRUGS (9)
  1. PERSANTIN [Suspect]
     Dosage: UNKNOWN QUANTITY
     Route: 048
  2. ADALAT [Suspect]
     Route: 048
  3. BAYMYCARD [Suspect]
     Route: 048
  4. EUPHYLLIN [Suspect]
     Route: 048
  5. EVINA [Suspect]
     Route: 048
  6. GODAMED [Suspect]
     Route: 048
  7. ISCOVER [Suspect]
     Route: 048
  8. PANTOZOL [Suspect]
     Dosage: UNKNOWN QUANTITY
     Route: 048
  9. UNIPHYLLIN RETARDTABLETTEN [Suspect]
     Route: 048

REACTIONS (4)
  - ALCOHOL USE [None]
  - DRUG ABUSER [None]
  - MULTIPLE DRUG OVERDOSE [None]
  - SUICIDE ATTEMPT [None]
